FAERS Safety Report 16803438 (Version 1)
Quarter: 2019Q3

REPORT INFORMATION
  Report Type: Report from Study
  Country: CR (occurrence: CR)
  Receive Date: 20190913
  Receipt Date: 20190913
  Transmission Date: 20191005
  Serious: Yes (Other)
  Sender: FDA-Public Use
  Company Number: CR-ROCHE-2329200

PATIENT
  Sex: Female

DRUGS (1)
  1. BONVIVA [Suspect]
     Active Substance: IBANDRONATE SODIUM
     Indication: PRODUCT USED FOR UNKNOWN INDICATION
     Route: 065

REACTIONS (6)
  - Gastritis [Not Recovered/Not Resolved]
  - Abdominal pain upper [Recovering/Resolving]
  - Oesophageal disorder [Unknown]
  - Ulcer [Unknown]
  - Drug intolerance [Unknown]
  - Oesophageal ulcer [Unknown]
